FAERS Safety Report 17064072 (Version 1)
Quarter: 2019Q4

REPORT INFORMATION
  Report Type: Spontaneous
  Country: US (occurrence: US)
  Receive Date: 20191023
  Receipt Date: 20191023
  Transmission Date: 20200122
  Serious: No
  Sender: FDA-Public Use
  Company Number: None

PATIENT
  Sex: Female

DRUGS (2)
  1. GONAL-F RFF [Suspect]
     Active Substance: FOLLITROPIN
     Indication: INFERTILITY FEMALE
     Dosage: ?          OTHER DOSE:125 UNITS;OTHER FREQUENCY:NIGHTLY;?
     Route: 058
     Dates: start: 20190913, end: 20190920
  2. GONAL-F RFF [Suspect]
     Active Substance: FOLLITROPIN
     Indication: INFERTILITY FEMALE
     Dosage: ?          OTHER DOSE:125 UNITS;OTHER FREQUENCY:NIGHTLY;?
     Route: 058
     Dates: start: 20190913, end: 20190920

REACTIONS (4)
  - Chest discomfort [None]
  - Dry skin [None]
  - Hypersensitivity [None]
  - Muscle spasms [None]
